FAERS Safety Report 6856445-3 (Version None)
Quarter: 2010Q3

REPORT INFORMATION
  Report Type: 
  Country: None (occurrence: None)
  Receive Date: 20100719
  Receipt Date: 20100712
  Transmission Date: 20110219
  Serious: Yes (Other)
  Sender: FDA-Public Use
  Company Number: ES-ROCHE-706656

PATIENT
  Sex: Female
  Weight: 70 kg

DRUGS (6)
  1. ROACTEMRA [Suspect]
     Indication: RHEUMATOID ARTHRITIS
     Dosage: DOSE: 8 MG/KG EVERY MONTH, MONTHLY DOSE: 500 MG
     Route: 042
     Dates: start: 20090731
  2. ROACTEMRA [Suspect]
     Dosage: DOSE 8 MG/KG, THERAPY MAINTAINED
     Route: 042
     Dates: start: 20100205
  3. ROACTEMRA [Suspect]
     Dosage: DOSE 8 MG/KG, THERAPY MAINTAINED
     Route: 042
     Dates: start: 20100305
  4. ROACTEMRA [Suspect]
     Dosage: DOSE 8 MG/KG, THERAPY MAINTAINED
     Route: 042
     Dates: start: 20100405
  5. ROACTEMRA [Suspect]
     Dosage: DOSE INTERRUPTED, FORM : INFUSION, DOSE: 8 MG/KG
     Route: 042
     Dates: start: 20100505
  6. ARAVA [Concomitant]
     Indication: RHEUMATOID ARTHRITIS
     Dosage: FREQUENCY: DAILY
     Route: 048
     Dates: start: 20060101

REACTIONS (7)
  - CONJUNCTIVITIS [None]
  - DEAFNESS [None]
  - EAR INFECTION [None]
  - KERATITIS HERPETIC [None]
  - NASOPHARYNGITIS [None]
  - NEUTROPENIA [None]
  - UPPER RESPIRATORY TRACT INFECTION [None]
